FAERS Safety Report 7708400-9 (Version None)
Quarter: 2011Q3

REPORT INFORMATION
  Report Type: 
  Country: None (occurrence: None)
  Receive Date: 20110825
  Receipt Date: 20110815
  Transmission Date: 20111222
  Serious: Yes (Hospitalization)
  Sender: FDA-Public Use
  Company Number: US-ELI_LILLY_AND_COMPANY-US201108005687

PATIENT
  Sex: Female

DRUGS (2)
  1. CYMBALTA [Suspect]
     Dosage: 50 MG, QD
  2. METFORMIN HYDROCHLORIDE [Concomitant]

REACTIONS (1)
  - LIP AND/OR ORAL CAVITY CANCER [None]
